FAERS Safety Report 16007340 (Version 1)
Quarter: 2019Q1

REPORT INFORMATION
  Report Type: Report from Study
  Country: GB (occurrence: GB)
  Receive Date: 20190226
  Receipt Date: 20190226
  Transmission Date: 20190418
  Serious: Yes (Other)
  Sender: FDA-Public Use
  Company Number: PHHY2018GB004404

PATIENT
  Sex: Female

DRUGS (1)
  1. SANDOSTATIN LAR DEPOT [Suspect]
     Active Substance: OCTREOTIDE ACETATE
     Indication: PRODUCT USED FOR UNKNOWN INDICATION
     Dosage: 20 MG, EVERY 4 WEEKS
     Route: 030
     Dates: start: 20170619

REACTIONS (4)
  - Gastrointestinal carcinoma [Unknown]
  - Diarrhoea [Unknown]
  - Malaise [Unknown]
  - Lung neoplasm [Unknown]
